FAERS Safety Report 6228764-5 (Version None)
Quarter: 2009Q2

REPORT INFORMATION
  Report Type: 
  Country: None (occurrence: None)
  Receive Date: 20090615
  Receipt Date: 20090609
  Transmission Date: 20091009
  Serious: Yes (Other)
  Sender: FDA-Public Use
  Company Number: US-ALLERGAN-0907309US

PATIENT
  Age: 51 Year
  Sex: Female
  Weight: 68.027 kg

DRUGS (12)
  1. LATISSE [Suspect]
     Indication: GROWTH OF EYELASHES
     Dosage: UNK, SINGLE
     Route: 061
     Dates: start: 20090501, end: 20090501
  2. VALIUM [Concomitant]
     Indication: DEPRESSION
     Dosage: 5 MG, QHS, PRN
     Route: 048
  3. VALIUM [Concomitant]
     Indication: ANXIETY
  4. VALIUM [Concomitant]
     Indication: SLEEP DISORDER
  5. EFFEXOR [Concomitant]
     Indication: DEPRESSION
  6. ZANAFLEX [Concomitant]
     Indication: DRUG USE FOR UNKNOWN INDICATION
  7. LASIX [Concomitant]
     Indication: FLUID RETENTION
     Dosage: 10 MG, PRN
     Route: 048
  8. LASIX [Concomitant]
     Indication: VERTIGO
  9. BACLOFEN [Concomitant]
     Indication: MUSCLE SPASMS
     Dosage: 10 MG, BID
     Route: 048
  10. OXYCONTIN [Concomitant]
     Indication: PAIN
     Dosage: 20 MG, BID
     Route: 048
  11. NORPRAMIN [Concomitant]
     Indication: DEPRESSION
     Dosage: 75 MG, QHS
     Route: 048
  12. TOPAMAX [Concomitant]
     Indication: PAIN
     Dosage: 300 MG, QHS
     Route: 048

REACTIONS (2)
  - EYELID OEDEMA [None]
  - HYPOTENSION [None]
